FAERS Safety Report 24828094 (Version 1)
Quarter: 2025Q1

REPORT INFORMATION
  Report Type: Spontaneous
  Country: US (occurrence: US)
  Receive Date: 20250109
  Receipt Date: 20250109
  Transmission Date: 20250409
  Serious: Yes (Other)
  Sender: AMGEN
  Company Number: US-AMGEN-USASP2025000028

PATIENT
  Age: 63 Year
  Sex: Male

DRUGS (15)
  1. PREDNISONE [Suspect]
     Active Substance: PREDNISONE
     Indication: Eye inflammation
     Dosage: 60 MILLIGRAM, QD
     Route: 048
  2. PREDNISONE [Suspect]
     Active Substance: PREDNISONE
     Indication: Intraocular pressure increased
  3. RITUXIMAB [Suspect]
     Active Substance: RITUXIMAB
     Indication: Ocular lymphoma
     Dosage: 1 GRAM, QWK IN OU
  4. BEVACIZUMAB [Suspect]
     Active Substance: BEVACIZUMAB
     Indication: Iris neovascularisation
  5. FILGRASTIM [Suspect]
     Active Substance: FILGRASTIM
     Indication: Product used for unknown indication
     Dosage: 5 MICROGRAM/MILLIGRAM, QD
     Route: 065
  6. POVIDONE-IODINE [Concomitant]
     Active Substance: POVIDONE-IODINE
     Route: 065
  7. PROPARACAINE [Concomitant]
     Active Substance: PROPARACAINE
     Route: 065
  8. TETRACAINE [Concomitant]
     Active Substance: TETRACAINE
     Route: 065
  9. PREDNISOLONE [Concomitant]
     Active Substance: PREDNISOLONE
     Route: 047
  10. BRIMONIDINE TARTRATE\TIMOLOL MALEATE [Concomitant]
     Active Substance: BRIMONIDINE TARTRATE\TIMOLOL MALEATE
     Route: 047
  11. TRAVOPROST [Concomitant]
     Active Substance: TRAVOPROST
     Route: 047
  12. BRINZOLAMIDE [Concomitant]
     Active Substance: BRINZOLAMIDE
     Route: 047
  13. BENDAMUSTINE [Concomitant]
     Active Substance: BENDAMUSTINE
     Route: 065
  14. CYTARABINE [Concomitant]
     Active Substance: CYTARABINE
     Route: 065
  15. BEAM [Concomitant]
     Active Substance: SODIUM FLUORIDE
     Route: 065

REACTIONS (5)
  - Mantle cell lymphoma recurrent [Recovered/Resolved]
  - Hyphaema [Recovered/Resolved]
  - Iris neovascularisation [Recovered/Resolved]
  - Neutrophil count abnormal [Unknown]
  - Off label use [Unknown]
